FAERS Safety Report 9764038 (Version 1)
Quarter: 2013Q4

REPORT INFORMATION
  Report Type: Other
  Country: JP (occurrence: JP)
  Receive Date: 20131216
  Receipt Date: 20131216
  Transmission Date: 20140711
  Serious: Yes (Congenital Anomaly)
  Sender: FDA-Public Use
  Company Number: JP-US-EMD SERONO, INC.-7255908

PATIENT
  Sex: Male
  Weight: 3 kg

DRUGS (4)
  1. LEVOTHYROXINE [Suspect]
     Indication: GENERALISED RESISTANCE TO THYROID HORMONE
     Dosage: 50 TO 300 MCG/DAY
     Route: 064
  2. CHORIOGONADOTROPIN ALFA [Suspect]
     Indication: PREGNANCY
     Route: 064
  3. CALCITRIOL [Suspect]
     Indication: PRODUCT USED FOR UNKNOWN INDICATION
     Route: 064
  4. CALCIUM CARBONATE [Suspect]
     Indication: PRODUCT USED FOR UNKNOWN INDICATION
     Dosage: 250 TO 1500MG/DAY
     Route: 064

REACTIONS (3)
  - Cephalo-pelvic disproportion [Recovered/Resolved]
  - Live birth [Recovered/Resolved]
  - Foetal exposure during pregnancy [Recovered/Resolved]
